FAERS Safety Report 5472900-5 (Version None)
Quarter: 2007Q4

REPORT INFORMATION
  Report Type: 
  Country: None (occurrence: None)
  Receive Date: 20071001
  Receipt Date: 20070925
  Transmission Date: 20080405
  Serious: Yes (Hospitalization)
  Sender: FDA-Public Use
  Company Number: B0475301A

PATIENT
  Age: 69 Year
  Sex: Male

DRUGS (13)
  1. REQUIP [Suspect]
     Indication: PARKINSON'S DISEASE
     Route: 048
     Dates: start: 20061227, end: 20070517
  2. MADOPAR [Concomitant]
     Indication: PARKINSON'S DISEASE
     Route: 048
     Dates: start: 20060405
  3. DIOVAN [Concomitant]
     Indication: HYPERTENSION
     Dosage: 160MG PER DAY
     Route: 048
     Dates: start: 20060405
  4. RESLIN [Concomitant]
     Indication: DEPRESSION
     Dosage: 100MG PER DAY
     Route: 048
     Dates: start: 20061129
  5. ALMARL [Concomitant]
     Indication: HYPERTENSION
     Dosage: 30MG PER DAY
     Route: 048
     Dates: start: 20060405
  6. UNKNOWN DRUG [Concomitant]
     Indication: OSTEOPOROSIS
     Dosage: 20MG PER DAY
     Route: 030
     Dates: start: 20060405
  7. FOSAMAC [Concomitant]
     Indication: OSTEOPOROSIS
     Dosage: 35MG PER DAY
     Route: 048
     Dates: start: 20060405
  8. HYPEN [Concomitant]
     Indication: BACK PAIN
     Dosage: 400MG PER DAY
     Route: 048
     Dates: start: 20061213
  9. NIFELANTERN CR [Concomitant]
     Indication: HYPERTENSION
     Dosage: 80MG PER DAY
     Route: 048
     Dates: start: 20061101
  10. UNKNOWN DRUG [Concomitant]
     Indication: ANXIETY
     Dosage: 10MG PER DAY
     Route: 048
     Dates: start: 20061213, end: 20070411
  11. NARCARICIN [Concomitant]
     Indication: GOUT
     Dosage: 25MG PER DAY
     Route: 048
     Dates: start: 20060424
  12. ASPIRIN [Concomitant]
     Indication: CEREBRAL INFARCTION
     Dosage: 100MG PER DAY
     Route: 048
     Dates: start: 20060405
  13. UNKNOWN DRUG [Concomitant]
     Indication: ARTERIOSCLEROSIS OBLITERANS
     Dosage: 10MCG PER DAY
     Route: 042
     Dates: start: 20060522

REACTIONS (4)
  - DELIRIUM [None]
  - DYSPHAGIA [None]
  - PORIOMANIA [None]
  - RESTLESSNESS [None]
